FAERS Safety Report 8218470-X (Version None)
Quarter: 2012Q1

REPORT INFORMATION
  Report Type: 
  Country: None (occurrence: None)
  Receive Date: 20120319
  Receipt Date: 20120308
  Transmission Date: 20120608
  Serious: Yes (Hospitalization)
  Sender: FDA-Public Use
  Company Number: JP-TEVA-302168ISR

PATIENT
  Sex: Female
  Weight: 53 kg

DRUGS (12)
  1. PRIMPERAN TAB [Concomitant]
     Dosage: 20 MILLIGRAM;
     Route: 042
     Dates: start: 20110914, end: 20110915
  2. PURSENNID [Concomitant]
     Dates: start: 20110706
  3. EMEND [Concomitant]
     Dosage: 80 MILLIGRAM;
     Dates: start: 20110914, end: 20110915
  4. LASIX [Concomitant]
     Dosage: 10 MILLIGRAM;
     Route: 042
     Dates: start: 20110913, end: 20110915
  5. DOMPERIDONE [Concomitant]
     Route: 048
     Dates: start: 20110825
  6. PEMETREXED [Suspect]
     Indication: NON-SMALL CELL LUNG CANCER
     Dosage: 760MG ,EVERY 3 WEEKS
     Route: 042
     Dates: start: 20110706, end: 20110913
  7. CISPLATIN [Suspect]
     Indication: NON-SMALL CELL LUNG CANCER
     Dosage: 114MG EVERY 3 WEEKS
     Route: 042
     Dates: start: 20110706, end: 20110913
  8. PANVITAN [Concomitant]
     Dosage: 1 GRAM;
     Route: 048
     Dates: start: 20110621
  9. EMEND [Concomitant]
     Dosage: 125 MILLIGRAM;
     Route: 048
     Dates: start: 20110913, end: 20110915
  10. DECADRON [Concomitant]
     Dosage: 16 MILLIGRAM;
     Route: 048
     Dates: start: 20110912, end: 20110914
  11. KYTRIL [Concomitant]
     Dosage: 3 MILLIGRAM;
     Route: 042
     Dates: start: 20110913, end: 20110913
  12. LASIX [Concomitant]
     Dosage: 10 MILLIGRAM;
     Route: 042
     Dates: start: 20110915, end: 20110915

REACTIONS (1)
  - SYNCOPE [None]
